FAERS Safety Report 17863105 (Version 1)
Quarter: 2020Q2

REPORT INFORMATION
  Report Type: Spontaneous
  Country: US (occurrence: US)
  Receive Date: 20200604
  Receipt Date: 20200604
  Transmission Date: 20200714
  Serious: Yes (Other)
  Sender: FDA-Public Use
  Company Number: US-GILEAD-2020-0469189

PATIENT
  Age: 56 Year
  Sex: Female
  Weight: 119.7 kg

DRUGS (21)
  1. FLUCONAZOLE. [Concomitant]
     Active Substance: FLUCONAZOLE
  2. BACLOFEN. [Concomitant]
     Active Substance: BACLOFEN
  3. FUROSEMIDE. [Concomitant]
     Active Substance: FUROSEMIDE
  4. MIDAZOLAM. [Concomitant]
     Active Substance: MIDAZOLAM
  5. FOLIC ACID. [Concomitant]
     Active Substance: FOLIC ACID
  6. ALBUTEROL;IPRATROPIUM [Concomitant]
     Active Substance: ALBUTEROL\IPRATROPIUM
  7. FERROUS SULFATE. [Concomitant]
     Active Substance: FERROUS SULFATE
  8. APIXABAN [Concomitant]
     Active Substance: APIXABAN
  9. VANCOMYCIN [Concomitant]
     Active Substance: VANCOMYCIN
  10. NOREPINEPHRINE. [Concomitant]
     Active Substance: NOREPINEPHRINE
  11. CEFEPIME [Concomitant]
     Active Substance: CEFEPIME HYDROCHLORIDE
  12. CEFTRIAXONE. [Concomitant]
     Active Substance: CEFTRIAXONE
  13. REMDESIVIR. [Suspect]
     Active Substance: REMDESIVIR
     Dosage: 100 UNK, QD
     Route: 042
     Dates: start: 20200515, end: 20200520
  14. DEXMEDETOMIDINE. [Concomitant]
     Active Substance: DEXMEDETOMIDINE
  15. DOXYCYCLINE. [Concomitant]
     Active Substance: DOXYCYCLINE
  16. HEPARIN [Concomitant]
     Active Substance: HEPARIN SODIUM
  17. MEROPENEM. [Concomitant]
     Active Substance: MEROPENEM
  18. PROPOFOL. [Concomitant]
     Active Substance: PROPOFOL
  19. REMDESIVIR. [Suspect]
     Active Substance: REMDESIVIR
     Indication: COVID-19
     Dosage: 200 MG, QD
     Route: 042
     Dates: start: 20200514, end: 20200514
  20. ACETAMINOPHEN. [Concomitant]
     Active Substance: ACETAMINOPHEN
  21. TOCILIZUMAB. [Concomitant]
     Active Substance: TOCILIZUMAB

REACTIONS (1)
  - Renal impairment [Unknown]
